FAERS Safety Report 8144534-5 (Version None)
Quarter: 2012Q1

REPORT INFORMATION
  Report Type: 
  Country: None (occurrence: None)
  Receive Date: 20120217
  Receipt Date: 20120207
  Transmission Date: 20120608
  Serious: Yes (Hospitalization)
  Sender: FDA-Public Use
  Company Number: US-ROCHE-417950

PATIENT
  Sex: Female
  Weight: 78.6 kg

DRUGS (3)
  1. TARCEVA [Suspect]
     Indication: BREAST CANCER
     Route: 048
  2. HERCEPTIN [Suspect]
     Indication: BREAST CANCER
     Route: 065
  3. PACLITAXEL [Suspect]
     Indication: BREAST CANCER
     Route: 042

REACTIONS (6)
  - HYPOKALAEMIA [None]
  - INFECTION [None]
  - DYSPNOEA [None]
  - HYPOXIA [None]
  - HYPONATRAEMIA [None]
  - NON-CARDIAC CHEST PAIN [None]
